FAERS Safety Report 12624386 (Version 1)
Quarter: 2016Q3

REPORT INFORMATION
  Report Type: Spontaneous
  Country: US (occurrence: US)
  Receive Date: 20160805
  Receipt Date: 20160805
  Transmission Date: 20161109
  Serious: No
  Sender: FDA-Public Use
  Company Number: US-BIOGEN-2016BI00274075

PATIENT
  Sex: Female

DRUGS (1)
  1. TECFIDERA [Suspect]
     Active Substance: DIMETHYL FUMARATE
     Indication: MULTIPLE SCLEROSIS
     Dosage: MAINTENANCE DATE
     Route: 048
     Dates: start: 20151202

REACTIONS (5)
  - Rash [Recovered/Resolved]
  - Adverse reaction [Recovered/Resolved]
  - Cognitive disorder [Not Recovered/Not Resolved]
  - Swelling [Recovered/Resolved]
  - Memory impairment [Unknown]
